FAERS Safety Report 20368422 (Version 1)
Quarter: 2022Q1

REPORT INFORMATION
  Report Type: Other
  Country: US (occurrence: None)
  Receive Date: 20220124
  Receipt Date: 20220124
  Transmission Date: 20220423
  Serious: Yes (Other)
  Sender: FDA-Public Use
  Company Number: US-ROCHE-3005393

PATIENT

DRUGS (2)
  1. RITUXIMAB [Suspect]
     Active Substance: RITUXIMAB
     Indication: Follicular lymphoma
     Dosage: ON DAYS 1, 8, 15 AND 22 OF CYCLE 1
     Route: 042
  2. PEMBROLIZUMAB [Suspect]
     Active Substance: PEMBROLIZUMAB
     Indication: Follicular lymphoma
     Dosage: EVERY 3 WEEKS FOR UP TO 16 CYCLES STARTING ON DAY 2 OF CYCLE 1
     Route: 042

REACTIONS (7)
  - Aspartate aminotransferase increased [Unknown]
  - Alanine aminotransferase increased [Unknown]
  - Diarrhoea [Unknown]
  - Meningitis aseptic [Unknown]
  - Pancreatitis [Unknown]
  - Nausea [Unknown]
  - Vomiting [Unknown]
